FAERS Safety Report 9243198 (Version 1)
Quarter: 2013Q2

REPORT INFORMATION
  Report Type: Spontaneous
  Country: US (occurrence: US)
  Receive Date: 20130419
  Receipt Date: 20130419
  Transmission Date: 20140414
  Serious: Yes (Other)
  Sender: FDA-Public Use
  Company Number: US-TEVA-398319USA

PATIENT
  Age: 43 Year
  Sex: Female

DRUGS (5)
  1. ACTIQ [Suspect]
     Indication: MIGRAINE
     Route: 002
     Dates: start: 20120701, end: 20130409
  2. ACTIQ [Suspect]
     Indication: BREAKTHROUGH PAIN
  3. FENTANYL PATCH [Concomitant]
     Indication: MIGRAINE
     Dosage: 33.3333 MICROGRAM DAILY;
     Dates: start: 20120701
  4. IMITREX [Concomitant]
     Indication: MIGRAINE
     Route: 048
  5. ZOFRAN [Concomitant]
     Indication: MIGRAINE
     Route: 048

REACTIONS (4)
  - Migraine [Not Recovered/Not Resolved]
  - Breakthrough pain [Not Recovered/Not Resolved]
  - Bedridden [Not Recovered/Not Resolved]
  - Off label use [Not Recovered/Not Resolved]
